FAERS Safety Report 15001859 (Version 4)
Quarter: 2018Q2

REPORT INFORMATION
  Report Type: Spontaneous
  Country: US (occurrence: US)
  Receive Date: 20180612
  Receipt Date: 20180622
  Transmission Date: 20180711
  Serious: No
  Sender: FDA-Public Use
  Company Number: US-TEVA-2018-US-901892

PATIENT
  Sex: Male
  Weight: 117 kg

DRUGS (2)
  1. ACTIQ [Suspect]
     Active Substance: FENTANYL CITRATE
     Indication: PAIN
     Route: 048
     Dates: start: 201805, end: 201805
  2. ACTIQ [Suspect]
     Active Substance: FENTANYL CITRATE
     Indication: THROAT CANCER

REACTIONS (2)
  - Pain [Unknown]
  - Drug ineffective [Unknown]
